FAERS Safety Report 5403608-X (Version None)
Quarter: 2007Q3

REPORT INFORMATION
  Report Type: 
  Country: None (occurrence: None)
  Receive Date: 20070802
  Receipt Date: 20070725
  Transmission Date: 20080115
  Serious: Yes (Other)
  Sender: FDA-Public Use
  Company Number: PHFR2007MT02204

PATIENT
  Age: 32 Year
  Sex: Male

DRUGS (1)
  1. CATAFLAM [Suspect]
     Indication: PAIN
     Dosage: 50 MG, BID
     Route: 048
     Dates: start: 20070718

REACTIONS (2)
  - DYSARTHRIA [None]
  - SOMNOLENCE [None]
